FAERS Safety Report 20247599 (Version 19)
Quarter: 2024Q1

REPORT INFORMATION
  Report Type: Report from Study
  Country: CA (occurrence: CA)
  Receive Date: 20211229
  Receipt Date: 20240122
  Transmission Date: 20240410
  Serious: Yes (Other)
  Sender: FDA-Public Use
  Company Number: CA-BAUSCH-BL-2021-029788

PATIENT
  Sex: Female
  Weight: 101 kg

DRUGS (12)
  1. CONTRAVE [Suspect]
     Active Substance: BUPROPION HYDROCHLORIDE\NALTREXONE HYDROCHLORIDE
     Indication: Weight control
     Dosage: 90MG/8MG, 4 MONTHS AGO (FROM INITIAL REPORT DATE)
     Route: 048
     Dates: start: 2021, end: 2021
  2. CONTRAVE [Suspect]
     Active Substance: BUPROPION HYDROCHLORIDE\NALTREXONE HYDROCHLORIDE
     Dosage: 90MG/8MG, 2 TAB Q AM, 2 TAB Q PM.
     Route: 048
     Dates: start: 20210607
  3. CONTRAVE [Suspect]
     Active Substance: BUPROPION HYDROCHLORIDE\NALTREXONE HYDROCHLORIDE
     Dosage: 90MG/8MG, 2 TAB Q AM, 2 TAB Q PM. (2ND ATTEMPT)
     Route: 048
     Dates: start: 20220204, end: 20220328
  4. CONTRAVE [Suspect]
     Active Substance: BUPROPION HYDROCHLORIDE\NALTREXONE HYDROCHLORIDE
     Dosage: 90MG/8MG, 2 TAB Q AM,2 TAB Q PM. (RESTARTED WITH 3RD ATTEMPT)
     Route: 048
     Dates: start: 20220411, end: 2022
  5. CONTRAVE [Suspect]
     Active Substance: BUPROPION HYDROCHLORIDE\NALTREXONE HYDROCHLORIDE
     Dosage: 90MG/8MG, 2 TAB Q AM
     Route: 048
     Dates: start: 20220903, end: 202209
  6. CONTRAVE [Suspect]
     Active Substance: BUPROPION HYDROCHLORIDE\NALTREXONE HYDROCHLORIDE
     Dosage: 90MG/8MG, 2-TAB Q AM, 2-TAB Q PM. (4TH ATTEMPT)
     Route: 048
     Dates: start: 20220907, end: 20230412
  7. CONTRAVE [Suspect]
     Active Substance: BUPROPION HYDROCHLORIDE\NALTREXONE HYDROCHLORIDE
     Dosage: 90MG/8MG, 2 IN THE MORNING
     Route: 048
     Dates: start: 202305, end: 202305
  8. CONTRAVE [Suspect]
     Active Substance: BUPROPION HYDROCHLORIDE\NALTREXONE HYDROCHLORIDE
     Dosage: 90MG/8MG, 2 IN THE MORNING AND 2 WITH DINNER (2 DOSAGE FORMS,1 IN 12 HR)
     Route: 048
     Dates: start: 20230517, end: 20231210
  9. COVID-19 VACCINE NOS [Suspect]
     Active Substance: COVID-19 VACCINE NOS
     Indication: COVID-19 immunisation
     Dosage: UNK
     Route: 065
  10. SIMPONI [Concomitant]
     Active Substance: GOLIMUMAB
     Indication: Ankylosing spondylitis
     Dosage: 1 IN 1 WK
     Route: 058
  11. TYLENOL [Concomitant]
     Active Substance: ACETAMINOPHEN
     Indication: Ankylosing spondylitis
     Dosage: 1500 MG (500 MG, 1 IN 8 HR)
     Route: 048
  12. KETOROLAC [Concomitant]
     Active Substance: KETOROLAC TROMETHAMINE
     Indication: Ankylosing spondylitis
     Dosage: 1 IN 24 HR
     Route: 048
     Dates: start: 20220411, end: 20220420

REACTIONS (34)
  - Precancerous condition [Unknown]
  - Breast injury [Not Recovered/Not Resolved]
  - Sleep apnoea syndrome [Not Recovered/Not Resolved]
  - Vertigo positional [Not Recovered/Not Resolved]
  - Hunger [Unknown]
  - Breast swelling [Not Recovered/Not Resolved]
  - Weight increased [Not Recovered/Not Resolved]
  - Hyperphagia [Unknown]
  - Peripheral swelling [Not Recovered/Not Resolved]
  - Joint swelling [Not Recovered/Not Resolved]
  - Pain in extremity [Not Recovered/Not Resolved]
  - Tooth infection [Not Recovered/Not Resolved]
  - Lymphocyte count increased [Not Recovered/Not Resolved]
  - Spider vein [Not Recovered/Not Resolved]
  - Chest discomfort [Recovered/Resolved]
  - Musculoskeletal discomfort [Recovered/Resolved]
  - Electrocardiogram abnormal [Not Recovered/Not Resolved]
  - Haemoglobin increased [Not Recovered/Not Resolved]
  - Alopecia areata [Not Recovered/Not Resolved]
  - Arthralgia [Not Recovered/Not Resolved]
  - Ear pain [Unknown]
  - Influenza [Not Recovered/Not Resolved]
  - Stress [Not Recovered/Not Resolved]
  - Abdominal pain upper [Not Recovered/Not Resolved]
  - Tremor [Not Recovered/Not Resolved]
  - Hyperhidrosis [Not Recovered/Not Resolved]
  - Headache [Recovered/Resolved]
  - Hot flush [Not Recovered/Not Resolved]
  - Palpitations [Not Recovered/Not Resolved]
  - Therapy interrupted [Unknown]
  - Inability to afford medication [Unknown]
  - Product use issue [Unknown]
  - Intentional product use issue [Unknown]
  - Patient dissatisfaction with treatment [Unknown]

NARRATIVE: CASE EVENT DATE: 20210101
